FAERS Safety Report 7637622-0 (Version None)
Quarter: 2011Q3

REPORT INFORMATION
  Report Type: 
  Country: None (occurrence: None)
  Receive Date: 20110726
  Receipt Date: 20110719
  Transmission Date: 20111222
  Serious: Yes (Hospitalization)
  Sender: FDA-Public Use
  Company Number: PHHY2011DK65635

PATIENT
  Age: 61 Year
  Sex: Male

DRUGS (1)
  1. AMOXICILLIN [Suspect]
     Indication: ARTHROPOD BITE
     Dosage: 375 MG, BID
     Route: 048

REACTIONS (13)
  - PRURITUS [None]
  - FAECES DISCOLOURED [None]
  - BACK PAIN [None]
  - JAUNDICE [None]
  - VENTRICULAR FAILURE [None]
  - ABDOMINAL PAIN [None]
  - HEPATITIS [None]
  - FATIGUE [None]
  - DECREASED APPETITE [None]
  - URINE COLOUR ABNORMAL [None]
  - HEPATIC ENZYME INCREASED [None]
  - HICCUPS [None]
  - WAIST CIRCUMFERENCE INCREASED [None]
